FAERS Safety Report 7584010-1 (Version None)
Quarter: 2011Q2

REPORT INFORMATION
  Report Type: 
  Country: None (occurrence: None)
  Receive Date: 20110630
  Receipt Date: 20110622
  Transmission Date: 20111010
  Serious: Yes (Other)
  Sender: FDA-Public Use
  Company Number: FR-JNJFOC-20110610916

PATIENT
  Age: 41 Year
  Sex: Male
  Weight: 60 kg

DRUGS (6)
  1. COTRIM [Concomitant]
     Indication: PROPHYLAXIS
     Route: 048
     Dates: start: 20110118
  2. TMC114 [Suspect]
     Indication: HIV INFECTION
     Route: 048
     Dates: start: 20110314
  3. RITONAVIR [Suspect]
     Indication: HIV INFECTION
     Route: 048
     Dates: start: 20110314
  4. DAFALGAN CODEINE [Concomitant]
     Indication: PAIN
     Route: 048
     Dates: start: 20110419
  5. TENOFOVIR DISOPROXIL FUMARATE [Suspect]
     Indication: HIV INFECTION
     Route: 048
     Dates: start: 20110314
  6. EMTRICITABINE [Suspect]
     Indication: HIV INFECTION
     Route: 048
     Dates: start: 20110314

REACTIONS (1)
  - GAMMA-GLUTAMYLTRANSFERASE INCREASED [None]
